FAERS Safety Report 18162529 (Version 2)
Quarter: 2020Q3

REPORT INFORMATION
  Report Type: Spontaneous
  Country: IT (occurrence: IT)
  Receive Date: 20200818
  Receipt Date: 20200907
  Transmission Date: 20201103
  Serious: Yes (Death, Life-Threatening, Hospitalization, Other)
  Sender: FDA-Public Use
  Company Number: IT-SAMSUNG BIOEPIS-SB-2018-05547

PATIENT
  Age: 61 Year
  Sex: Male

DRUGS (13)
  1. TACROLIMUS. [Suspect]
     Active Substance: TACROLIMUS
     Dosage: UNKNOWN
     Route: 065
     Dates: start: 201611, end: 2016
  2. ANTITHYMOCYTE GLOBULIN [Suspect]
     Active Substance: THYMOCYTE IMMUNE GLOBULIN NOS
     Indication: GRAFT VERSUS HOST DISEASE
  3. ETANERCEPT [Suspect]
     Active Substance: ETANERCEPT
     Indication: GRAFT VERSUS HOST DISEASE
     Route: 058
     Dates: start: 2016
  4. METHYLPREDNISOLONE. [Suspect]
     Active Substance: METHYLPREDNISOLONE
     Route: 065
     Dates: start: 2016
  5. TACROLIMUS. [Suspect]
     Active Substance: TACROLIMUS
     Dosage: LOWER DOSE OF TACROLIMUS
     Route: 065
     Dates: start: 2016
  6. METHYLPREDNISOLONE. [Suspect]
     Active Substance: METHYLPREDNISOLONE
     Indication: IMMUNOSUPPRESSANT DRUG THERAPY
     Dosage: STARTED FROM POST?OPERATIVE DAY 1
     Route: 065
     Dates: start: 201611, end: 2016
  7. TACROLIMUS. [Suspect]
     Active Substance: TACROLIMUS
     Indication: IMMUNOSUPPRESSANT DRUG THERAPY
     Route: 065
     Dates: start: 201611, end: 2016
  8. EVEROLIMUS. [Suspect]
     Active Substance: EVEROLIMUS
     Indication: IMMUNOSUPPRESSANT DRUG THERAPY
     Dosage: EVEROLIMUS AT 3 MG/DAY FROM POD7
     Route: 065
     Dates: start: 201611, end: 2016
  9. MEROPENEM. [Concomitant]
     Active Substance: MEROPENEM
     Indication: ANTIBIOTIC PROPHYLAXIS
     Dosage: UNKNOWN
     Route: 065
  10. DAPTOMYCIN. [Concomitant]
     Active Substance: DAPTOMYCIN
     Indication: ANTIBIOTIC PROPHYLAXIS
     Dosage: UNKNOWN
     Route: 065
  11. ANTITHYMOCYTE GLOBULIN [Suspect]
     Active Substance: THYMOCYTE IMMUNE GLOBULIN NOS
     Indication: IMMUNOSUPPRESSANT DRUG THERAPY
     Route: 065
     Dates: start: 2016, end: 2016
  12. GANCICLOVIR. [Concomitant]
     Active Substance: GANCICLOVIR
     Indication: ANTIVIRAL TREATMENT
     Route: 065
  13. CASPOFUNGIN [Concomitant]
     Active Substance: CASPOFUNGIN
     Indication: ANTIFUNGAL PROPHYLAXIS
     Dosage: UNKNOWN
     Route: 065

REACTIONS (20)
  - Cytomegalovirus infection [Fatal]
  - Aspergillus infection [Fatal]
  - Enteritis [Unknown]
  - Chimerism [Unknown]
  - Platelet count decreased [Unknown]
  - Drug ineffective for unapproved indication [Unknown]
  - Multiple organ dysfunction syndrome [Fatal]
  - Aplastic anaemia [Unknown]
  - Haemoglobin decreased [Unknown]
  - Graft versus host disease in skin [Unknown]
  - Enterococcal infection [Fatal]
  - Malnutrition [Unknown]
  - Drug ineffective [Unknown]
  - Septic shock [Fatal]
  - Systemic inflammatory response syndrome [Unknown]
  - Leukopenia [Recovering/Resolving]
  - Off label use [Unknown]
  - Bone marrow disorder [Unknown]
  - Intestinal haemorrhage [Unknown]
  - Diarrhoea [Unknown]

NARRATIVE: CASE EVENT DATE: 2016
